FAERS Safety Report 5303299-2 (Version None)
Quarter: 2007Q2

REPORT INFORMATION
  Report Type: 
  Country: None (occurrence: None)
  Receive Date: 20070420
  Receipt Date: 20070417
  Transmission Date: 20071010
  Serious: Yes (Hospitalization)
  Sender: FDA-Public Use
  Company Number: GB-GLAXOSMITHKLINE-B0463100A

PATIENT
  Age: 67 Year
  Sex: Female

DRUGS (2)
  1. ACYCLOVIR [Suspect]
     Dosage: 200MG FIVE TIMES PER DAY
     Route: 065
  2. HAEMODIALYSIS [Concomitant]
     Route: 065

REACTIONS (7)
  - ABNORMAL BEHAVIOUR [None]
  - AFFECT LABILITY [None]
  - GAIT DISTURBANCE [None]
  - GLASGOW COMA SCALE ABNORMAL [None]
  - NEUROTOXICITY [None]
  - SOMNOLENCE [None]
  - SUBDURAL HAEMATOMA [None]
